FAERS Safety Report 8386083-5 (Version None)
Quarter: 2012Q2

REPORT INFORMATION
  Report Type: 
  Country: None (occurrence: None)
  Receive Date: 20120523
  Receipt Date: 20120510
  Transmission Date: 20120825
  Serious: Yes (Other)
  Sender: FDA-Public Use
  Company Number: DSU-2012-02939

PATIENT
  Age: 81 Year
  Sex: Male

DRUGS (2)
  1. BENICAR [Suspect]
     Indication: HYPERTENSION
     Dosage: (40 MG),PER ORAL
     Route: 048
     Dates: start: 20100801, end: 20100826
  2. BENICAR [Suspect]
     Indication: HYPERTENSION
     Dosage: (40 MG),PER ORAL
     Route: 048
     Dates: start: 20061218

REACTIONS (5)
  - HELICOBACTER INFECTION [None]
  - VOMITING [None]
  - WEIGHT DECREASED [None]
  - HYPOTENSION [None]
  - CLOSTRIDIAL INFECTION [None]
